FAERS Safety Report 5533884-4 (Version None)
Quarter: 2007Q4

REPORT INFORMATION
  Report Type: 
  Country: None (occurrence: None)
  Receive Date: 20071129
  Receipt Date: 20071120
  Transmission Date: 20080405
  Serious: Yes (Other)
  Sender: FDA-Public Use
  Company Number: 2007-05252

PATIENT
  Age: 43 Year
  Sex: Female

DRUGS (4)
  1. ANDRODERM [Suspect]
     Indication: LOSS OF LIBIDO
     Dosage: 300 MCG, Q24H, TRANSDERMAL
     Route: 062
     Dates: start: 20070515, end: 20071019
  2. BECLOMETHASONE DIPROPIONATE [Concomitant]
  3. SALBUTAMOL SULFATE (SALBUTAMOL SULFATE) [Concomitant]
  4. OESTRADIOL [Concomitant]

REACTIONS (4)
  - CONNECTIVE TISSUE DISORDER [None]
  - PERIPHERAL COLDNESS [None]
  - SKIN DISCOLOURATION [None]
  - VASCULITIS [None]
